FAERS Safety Report 18193235 (Version 6)
Quarter: 2025Q3

REPORT INFORMATION
  Report Type: Report from Study
  Country: BR (occurrence: BR)
  Receive Date: 20200825
  Receipt Date: 20250702
  Transmission Date: 20251020
  Serious: Yes (Hospitalization, Other)
  Sender: NOVARTIS
  Company Number: NVSC2020BR010288

PATIENT
  Age: 50 Year
  Sex: Female

DRUGS (15)
  1. COSENTYX [Suspect]
     Active Substance: SECUKINUMAB
     Indication: Psoriatic arthropathy
     Route: 065
     Dates: start: 201908
  2. COSENTYX [Suspect]
     Active Substance: SECUKINUMAB
     Dosage: 300 MG, QMO (EVERY 28 DAYS) (1 PEN)
     Route: 065
     Dates: start: 20191010
  3. COSENTYX [Suspect]
     Active Substance: SECUKINUMAB
     Route: 065
     Dates: start: 20200103
  4. COSENTYX [Suspect]
     Active Substance: SECUKINUMAB
     Route: 065
  5. COSENTYX [Suspect]
     Active Substance: SECUKINUMAB
     Route: 065
  6. COSENTYX [Suspect]
     Active Substance: SECUKINUMAB
     Route: 065
  7. COSENTYX [Suspect]
     Active Substance: SECUKINUMAB
     Route: 065
     Dates: start: 20200813
  8. COSENTYX [Suspect]
     Active Substance: SECUKINUMAB
     Route: 065
     Dates: start: 20210610
  9. COSENTYX [Suspect]
     Active Substance: SECUKINUMAB
     Dosage: 2 PEN, QMO
     Route: 065
     Dates: start: 20211103
  10. COSENTYX [Suspect]
     Active Substance: SECUKINUMAB
     Dosage: 2 DOSAGE FORM, QMO
     Route: 065
  11. METHOTREXATE [Suspect]
     Active Substance: METHOTREXATE
     Indication: Product used for unknown indication
     Route: 065
  12. ISONIAZID [Concomitant]
     Active Substance: ISONIAZID
     Indication: Product used for unknown indication
     Route: 065
  13. ALBUTEROL [Concomitant]
     Active Substance: ALBUTEROL
     Indication: Asthma
     Route: 055
  14. Alenia [Concomitant]
     Indication: Cough
     Route: 065
  15. Alenia [Concomitant]
     Indication: Dyspnoea

REACTIONS (41)
  - Cellulitis [Unknown]
  - Burning sensation [Not Recovered/Not Resolved]
  - Pyelonephritis [Unknown]
  - Nephrolithiasis [Unknown]
  - Pulmonary fibrosis [Unknown]
  - Superior mesenteric artery syndrome [Unknown]
  - Blindness [Not Recovered/Not Resolved]
  - Psoriatic arthropathy [Unknown]
  - Oedema peripheral [Unknown]
  - Peripheral swelling [Recovering/Resolving]
  - Wound [Recovering/Resolving]
  - Stress [Unknown]
  - Disease progression [Not Recovered/Not Resolved]
  - Pain in extremity [Unknown]
  - Arthralgia [Unknown]
  - Guttate psoriasis [Recovering/Resolving]
  - Psoriasis [Recovering/Resolving]
  - Erythema [Not Recovered/Not Resolved]
  - Inflammation [Not Recovered/Not Resolved]
  - Pruritus [Not Recovered/Not Resolved]
  - Skin lesion [Not Recovered/Not Resolved]
  - Tendonitis [Recovering/Resolving]
  - Tendon disorder [Unknown]
  - Cardiac disorder [Unknown]
  - Limb injury [Not Recovered/Not Resolved]
  - Wound complication [Unknown]
  - Atelectasis [Recovering/Resolving]
  - Concomitant disease aggravated [Recovering/Resolving]
  - Malaise [Unknown]
  - Fatigue [Recovering/Resolving]
  - Asthma [Recovering/Resolving]
  - Cough [Unknown]
  - Dyspnoea [Recovering/Resolving]
  - Arterial stiffness [Unknown]
  - Tendon discomfort [Unknown]
  - Arthropathy [Not Recovered/Not Resolved]
  - Urinary tract infection [Unknown]
  - Gait disturbance [Recovering/Resolving]
  - Treatment failure [Unknown]
  - Therapeutic product effect incomplete [Unknown]
  - Drug ineffective [Unknown]

NARRATIVE: CASE EVENT DATE: 20191217
